FAERS Safety Report 5508929-8 (Version None)
Quarter: 2007Q4

REPORT INFORMATION
  Report Type: 
  Country: None (occurrence: None)
  Receive Date: 20071031
  Receipt Date: 20070623
  Transmission Date: 20080405
  Serious: No
  Sender: FDA-Public Use
  Company Number: 2007PV033252

PATIENT
  Sex: Female

DRUGS (2)
  1. SYMLIN [Suspect]
     Dosage: SC
     Route: 058
     Dates: start: 20060101, end: 20060101
  2. HUMALOG [Concomitant]

REACTIONS (2)
  - INJECTION SITE BRUISING [None]
  - INJECTION SITE PAIN [None]
